FAERS Safety Report 9891843 (Version 3)
Quarter: 2014Q3

REPORT INFORMATION
  Report Type: Spontaneous
  Country: US (occurrence: US)
  Receive Date: 20140212
  Receipt Date: 20140807
  Transmission Date: 20150326
  Serious: Yes (Hospitalization, Other)
  Sender: FDA-Public Use
  Company Number: US-BAYER-2014-022007

PATIENT
  Age: 25 Year
  Sex: Female
  Weight: 48.53 kg

DRUGS (3)
  1. LOESTRIN NOS [Concomitant]
     Active Substance: ETHINYL ESTRADIOL\NORETHINDRONE ACETATE
  2. YASMIN [Concomitant]
     Active Substance: DROSPIRENONE\ETHINYL ESTRADIOL
  3. MIRENA [Suspect]
     Active Substance: LEVONORGESTREL
     Indication: CONTRACEPTION
     Dosage: 20 MCG/24HR, CONT
     Route: 015
     Dates: start: 20110308, end: 20120206

REACTIONS (8)
  - Injury [None]
  - Medical device complication [None]
  - Nausea [None]
  - Scar [None]
  - Uterine perforation [None]
  - Pain [None]
  - Genital haemorrhage [None]
  - Emotional distress [None]

NARRATIVE: CASE EVENT DATE: 201105
